FAERS Safety Report 9010865 (Version 1)
Quarter: 2013Q1

REPORT INFORMATION
  Report Type: Spontaneous
  Country: FR (occurrence: FR)
  Receive Date: 20130109
  Receipt Date: 20130109
  Transmission Date: 20140127
  Serious: Yes (Death, Hospitalization)
  Sender: FDA-Public Use
  Company Number: FR-B.I. PHARMACEUTICALS,INC./RIDGEFIELD-2012-FF-01672FF

PATIENT
  Sex: Male

DRUGS (6)
  1. PRADAXA [Suspect]
     Indication: ATRIAL FIBRILLATION
     Dosage: 220 MG
     Route: 048
     Dates: start: 20120427, end: 20120515
  2. COAPROVEL [Concomitant]
  3. GLUCOPHAGE [Concomitant]
     Indication: TYPE 2 DIABETES MELLITUS
     Dosage: 1000 MG
  4. XELEVIA [Concomitant]
     Indication: TYPE 2 DIABETES MELLITUS
  5. DIAMICRON [Concomitant]
     Indication: TYPE 2 DIABETES MELLITUS
  6. OXYNORM [Concomitant]
     Indication: MUSCULOSKELETAL PAIN

REACTIONS (5)
  - Malignant neoplasm progression [Fatal]
  - Encephalopathy [Unknown]
  - Abnormal behaviour [Unknown]
  - Transaminases increased [Recovered/Resolved]
  - Asthenia [Unknown]
